FAERS Safety Report 7968327-4 (Version None)
Quarter: 2011Q4

REPORT INFORMATION
  Report Type: 
  Country: None (occurrence: None)
  Receive Date: 20111209
  Receipt Date: 20111130
  Transmission Date: 20120403
  Serious: Yes (Hospitalization)
  Sender: FDA-Public Use
  Company Number: MX-SANOFI-AVENTIS-2011SA079295

PATIENT
  Age: 45 Year
  Sex: Male
  Weight: 83 kg

DRUGS (8)
  1. PLAVIX [Suspect]
     Indication: THROMBOSIS PROPHYLAXIS
     Route: 048
     Dates: start: 20080501
  2. JANUMET [Concomitant]
     Indication: TYPE 2 DIABETES MELLITUS
     Dosage: 1 ? TABLET / 1 TABLET IN FASTING FOR THE MORNING AND ? TABLET AFTER THE FOOD
     Route: 048
     Dates: start: 20080101
  3. METOPROLOL TARTRATE [Concomitant]
     Indication: HYPERTENSION
     Route: 048
     Dates: start: 20081101
  4. FEMULEN [Concomitant]
     Route: 048
     Dates: start: 20081101
  5. OLMESARTAN MEDOXOMIL [Concomitant]
     Route: 048
     Dates: start: 20081127
  6. ALL OTHER THERAPEUTIC PRODUCTS [Concomitant]
     Route: 048
     Dates: start: 20081127
  7. LANTUS [Suspect]
     Indication: TYPE 2 DIABETES MELLITUS
     Route: 058
     Dates: start: 20060101
  8. STUGERON [Concomitant]
     Route: 048
     Dates: start: 20081127

REACTIONS (3)
  - PROTEINURIA [None]
  - CEREBROVASCULAR ACCIDENT [None]
  - BALANCE DISORDER [None]
